FAERS Safety Report 17884206 (Version 1)
Quarter: 2020Q2

REPORT INFORMATION
  Report Type: Spontaneous
  Country: US (occurrence: US)
  Receive Date: 20200611
  Receipt Date: 20200611
  Transmission Date: 20200714
  Serious: Yes (Other)
  Sender: FDA-Public Use
  Company Number: NVSC2020US161053

PATIENT
  Sex: Female
  Weight: 73.47 kg

DRUGS (9)
  1. IBRANCE [Suspect]
     Active Substance: PALBOCICLIB
     Dosage: 75 MG, QD(21 DAYS ON 7 DAYS OFF)
     Route: 065
     Dates: start: 201910
  2. XGEVA [Suspect]
     Active Substance: DENOSUMAB
     Indication: PRODUCT USED FOR UNKNOWN INDICATION
     Dosage: 120 MG, QMO(1.7ML)
     Route: 065
     Dates: start: 20181221
  3. LUPRON [Suspect]
     Active Substance: LEUPROLIDE ACETATE
     Indication: PRODUCT USED FOR UNKNOWN INDICATION
     Dosage: 3.75 MG, QMO
     Route: 065
  4. PROLIA [Suspect]
     Active Substance: DENOSUMAB
     Indication: PRODUCT USED FOR UNKNOWN INDICATION
     Dosage: UNK, ONCE/SINGLE
     Route: 042
     Dates: start: 20181129, end: 20181129
  5. IBRANCE [Suspect]
     Active Substance: PALBOCICLIB
     Indication: BREAST CANCER METASTATIC
     Dosage: 125 MG, QD
     Route: 065
     Dates: start: 20181130, end: 201901
  6. CALCIUM [Suspect]
     Active Substance: CALCIUM
     Indication: PRODUCT USED FOR UNKNOWN INDICATION
     Dosage: 1900 MG, QD
     Route: 065
     Dates: start: 20181129
  7. LETROZOLE. [Suspect]
     Active Substance: LETROZOLE
     Indication: BREAST CANCER METASTATIC
     Dosage: 2.5 MG, QD(28 DAY CYCLE)
     Route: 065
     Dates: start: 20181130
  8. LETROZOLE. [Suspect]
     Active Substance: LETROZOLE
     Indication: METASTASES TO BONE
  9. IBRANCE [Suspect]
     Active Substance: PALBOCICLIB
     Indication: METASTASES TO BONE
     Dosage: 100 UNK
     Route: 065
     Dates: start: 201901, end: 201909

REACTIONS (15)
  - Arthralgia [Unknown]
  - Thirst [Unknown]
  - Depressed mood [Unknown]
  - Appendicitis [Unknown]
  - Weight increased [Unknown]
  - Fatigue [Not Recovered/Not Resolved]
  - Decreased appetite [Unknown]
  - Decreased immune responsiveness [Unknown]
  - Bone pain [Unknown]
  - Myalgia [Unknown]
  - White blood cell count decreased [Unknown]
  - Pain [Not Recovered/Not Resolved]
  - Taste disorder [Unknown]
  - Alopecia [Unknown]
  - Malaise [Unknown]
